FAERS Safety Report 16759940 (Version 1)
Quarter: 2019Q3

REPORT INFORMATION
  Report Type: Spontaneous
  Country: US (occurrence: US)
  Receive Date: 20190830
  Receipt Date: 20190830
  Transmission Date: 20191005
  Serious: Yes (Other)
  Sender: FDA-Public Use
  Company Number: US-PFIZER INC-2019370606

PATIENT
  Age: 66 Year
  Sex: Female
  Weight: 92.99 kg

DRUGS (1)
  1. VENLAFAXINE HCL [Suspect]
     Active Substance: VENLAFAXINE HYDROCHLORIDE
     Indication: DEPRESSION
     Dosage: 150 MG, 2X/DAY (ONE IN THE MORNING AND ONE IN THE NIGHT)

REACTIONS (3)
  - Drug dependence [Unknown]
  - Headache [Unknown]
  - Feeling abnormal [Unknown]
